FAERS Safety Report 7820344-0 (Version None)
Quarter: 2011Q4

REPORT INFORMATION
  Report Type: 
  Country: None (occurrence: None)
  Receive Date: 20111018
  Receipt Date: 20110425
  Transmission Date: 20120403
  Serious: Yes (Death, Other)
  Sender: FDA-Public Use
  Company Number: US-BAYER-201032202NA

PATIENT
  Age: 31 Year
  Sex: Female
  Weight: 136 kg

DRUGS (4)
  1. YASMIN [Suspect]
     Indication: MENSTRUAL DISORDER
     Dosage: UNK UNK, UNK
     Route: 048
     Dates: start: 20040101, end: 20060101
  2. YAZ [Suspect]
     Indication: MENSTRUAL DISORDER
     Dosage: UNK UNK, UNK
     Route: 048
     Dates: start: 20040101, end: 20060101
  3. DROSPIRENONE AND ETHINYL ESTRADIOL [Suspect]
     Route: 048
  4. UNSPECIFIED DRUG [Concomitant]

REACTIONS (13)
  - HYPERTENSION [None]
  - EMBOLISM ARTERIAL [None]
  - DEEP VEIN THROMBOSIS [None]
  - MYOCARDIAL INFARCTION [None]
  - GALLBLADDER DISORDER [None]
  - THROMBOPHLEBITIS [None]
  - CEREBRAL THROMBOSIS [None]
  - HEPATIC ADENOMA [None]
  - PULMONARY EMBOLISM [None]
  - ARRHYTHMIA [None]
  - CEREBRAL HAEMORRHAGE [None]
  - BENIGN HEPATIC NEOPLASM [None]
  - CORONARY ARTERY DISEASE [None]
